FAERS Safety Report 5281647-X (Version None)
Quarter: 2007Q1

REPORT INFORMATION
  Report Type: 
  Country: None (occurrence: None)
  Receive Date: 20061215
  Receipt Date: 20060614
  Transmission Date: 20070707
  Serious: Yes (Hospitalization, Other)
  Sender: FDA-Public Use
  Company Number: HQWYE233715JUN06

PATIENT
  Age: 53 Year
  Sex: Female
  Weight: 63.56 kg

DRUGS (6)
  1. EFFEXOR XR [Suspect]
     Indication: DEPRESSION
     Dosage: 375 MG 1X PER 1 DAY, ORAL
     Route: 048
     Dates: start: 20000801, end: 20060502
  2. STRATTERA [Concomitant]
  3. TRAZODONE HCL [Concomitant]
  4. FOCALIN XR (DEXMETHYLPHENIDATE HYDROCHLORIDE) [Concomitant]
  5. MORPHINE SULFATE [Concomitant]
  6. UNSPECIFIED NARCOTIC (UNSPECIFIED NARCOTIC) [Concomitant]

REACTIONS (1)
  - PANCREATITIS [None]
